FAERS Safety Report 20098235 (Version 2)
Quarter: 2022Q4

REPORT INFORMATION
  Report Type: Report from Study
  Country: US (occurrence: US)
  Receive Date: 20211122
  Receipt Date: 20221215
  Transmission Date: 20230113
  Serious: Yes (Death, Other)
  Sender: FDA-Public Use
  Company Number: US-PFIZER INC-202101605852

PATIENT

DRUGS (4)
  1. VINCRISTINE SULFATE [Suspect]
     Active Substance: VINCRISTINE SULFATE
     Indication: Hepatoblastoma
     Dosage: 1.5 MG/M2, DAILY (DAY 2, 9 AND 16, 2-MG MAXIMUM DOSE, OR 0.05 MG/KG/D)
     Route: 042
  2. DOXORUBICIN HYDROCHLORIDE [Suspect]
     Active Substance: DOXORUBICIN HYDROCHLORIDE
     Indication: Hepatoblastoma
     Dosage: 30 MG/M2, CYCLIC (DAY 1 AND 2, OR 1 MG/KG PER DOSE FOR LESS THAN 10 KG OVER 15 MIN)
     Route: 042
  3. CISPLATIN [Suspect]
     Active Substance: CISPLATIN
     Indication: Hepatoblastoma
     Dosage: 100 MG/M2, CYCLIC (OVER 6 HOURS ON DAY 1 OR 3.3 MG/KG PER DOSE FOR LESS THAN 10 KG)
     Route: 042
  4. FLUOROURACIL [Suspect]
     Active Substance: FLUOROURACIL
     Indication: Hepatoblastoma
     Dosage: 600 MG/M2, CYCLIC (DAY 2 OR 20 MG/KG PER DOSE FOR LESS THAN 10 KG)
     Route: 042

REACTIONS (1)
  - Death [Fatal]
